FAERS Safety Report 5600872-9 (Version None)
Quarter: 2008Q1

REPORT INFORMATION
  Report Type: 
  Country: None (occurrence: None)
  Receive Date: 20080118
  Receipt Date: 20080110
  Transmission Date: 20080703
  Serious: Yes (Death, Other)
  Sender: FDA-Public Use
  Company Number: 062-21880-08010601

PATIENT
  Age: 62 Year
  Sex: Female

DRUGS (2)
  1. REVLIMID [Suspect]
     Indication: CHRONIC LYMPHOCYTIC LEUKAEMIA
     Dosage: 15 MG, ORAL, 25 MG, DAILY, ORAL
     Route: 048
     Dates: start: 20071001
  2. REVLIMID [Suspect]
     Indication: CHRONIC LYMPHOCYTIC LEUKAEMIA
     Dosage: 15 MG, ORAL, 25 MG, DAILY, ORAL
     Route: 048
     Dates: start: 20071220

REACTIONS (4)
  - LEUKOPENIA [None]
  - PULMONARY HAEMORRHAGE [None]
  - STAPHYLOCOCCAL SEPSIS [None]
  - THROMBOCYTOPENIA [None]
